FAERS Safety Report 4614844-4 (Version None)
Quarter: 2005Q1

REPORT INFORMATION
  Report Type: 
  Country: None (occurrence: None)
  Receive Date: 20050318
  Receipt Date: 20050318
  Transmission Date: 20050727
  Serious: No
  Sender: FDA-Public Use
  Company Number: None

PATIENT
  Sex: Male
  Weight: 17.2 kg

DRUGS (2)
  1. ONCASPAR [Suspect]
     Indication: ACUTE LYMPHOCYTIC LEUKAEMIA
     Dosage: 1800 UNITS   MONTHLY   INTRAMUSCU
     Route: 030
     Dates: start: 20050209, end: 20050209
  2. VINCRISTINE [Concomitant]

REACTIONS (5)
  - ANAPHYLACTIC REACTION [None]
  - COUGH [None]
  - ERYTHEMA [None]
  - RESPIRATORY DISORDER [None]
  - SWELLING FACE [None]
